FAERS Safety Report 10747575 (Version 1)
Quarter: 2015Q1

REPORT INFORMATION
  Report Type: Spontaneous
  Country: US (occurrence: US)
  Receive Date: 20150129
  Receipt Date: 20150129
  Transmission Date: 20150721
  Serious: No
  Sender: FDA-Public Use
  Company Number: US-BIOGENIDEC-2015BI009655

PATIENT
  Sex: Male

DRUGS (1)
  1. TECFIDERA [Suspect]
     Active Substance: DIMETHYL FUMARATE
     Indication: RELAPSING-REMITTING MULTIPLE SCLEROSIS
     Dates: start: 20150110

REACTIONS (9)
  - Anxiety [Unknown]
  - Eye pruritus [Recovered/Resolved]
  - Headache [Unknown]
  - Depression [Unknown]
  - Back injury [Unknown]
  - Dry eye [Recovered/Resolved]
  - General symptom [Unknown]
  - Central nervous system lesion [Unknown]
  - Blepharospasm [Recovered/Resolved]
